FAERS Safety Report 6914497-6 (Version None)
Quarter: 2010Q3

REPORT INFORMATION
  Report Type: 
  Country: None (occurrence: None)
  Receive Date: 20100809
  Receipt Date: 20100728
  Transmission Date: 20110219
  Serious: Yes (Other)
  Sender: FDA-Public Use
  Company Number: ES-ELI_LILLY_AND_COMPANY-ES201007007230

PATIENT
  Sex: Male
  Weight: 108 kg

DRUGS (3)
  1. FORTEO [Suspect]
     Indication: OSTEOPOROSIS
     Dosage: 20 MG, DAILY (1/D)
     Route: 058
     Dates: start: 20100609
  2. HYDROMORPHONE HCL [Concomitant]
     Indication: PAIN
     Dosage: 8 MG, 1/2 TABLET EVERY 12 HRS
     Route: 048
  3. PROTELOS [Concomitant]
     Indication: OSTEOPOROSIS
     Dosage: 1 TABLET, DAILY (1/D)
     Route: 048

REACTIONS (2)
  - BALANCE DISORDER [None]
  - BONE FISSURE [None]
